FAERS Safety Report 7816553-7 (Version None)
Quarter: 2011Q4

REPORT INFORMATION
  Report Type: 
  Country: None (occurrence: None)
  Receive Date: 20111017
  Receipt Date: 20111012
  Transmission Date: 20120403
  Serious: Yes (Other)
  Sender: FDA-Public Use
  Company Number: CH-PFIZER INC-2011214698

PATIENT
  Age: 34 Year
  Sex: Male
  Weight: 99 kg

DRUGS (2)
  1. LYRICA [Suspect]
     Indication: NEURALGIA
     Dosage: 50 MG, 2X/DAY
     Route: 048
     Dates: start: 20110810, end: 20110801
  2. LYRICA [Suspect]
     Dosage: 40 CAPSULES OF 50 MG PREGABALIN WITHIN 24 HOURS
     Route: 048
     Dates: start: 20110801, end: 20110818

REACTIONS (7)
  - DRY MOUTH [None]
  - LIBIDO INCREASED [None]
  - INTENTIONAL OVERDOSE [None]
  - AFFECTIVE DISORDER [None]
  - MUSCLE SPASMS [None]
  - SEXUAL ACTIVITY INCREASED [None]
  - AGITATION [None]
